FAERS Safety Report 4500801-5 (Version None)
Quarter: 2004Q4

REPORT INFORMATION
  Report Type: 
  Country: None (occurrence: None)
  Receive Date: 20041115
  Receipt Date: 20041109
  Transmission Date: 20050328
  Serious: Yes (Hospitalization)
  Sender: FDA-Public Use
  Company Number: GB-BRISTOL-MYERS SQUIBB COMPANY-12759494

PATIENT
  Age: 43 Year
  Sex: Female
  Weight: 56 kg

DRUGS (4)
  1. CYCLOPHOSPHAMIDE [Suspect]
     Indication: BREAST CANCER
     Dates: start: 20040811, end: 20040811
  2. PACLITAXEL [Suspect]
     Indication: BREAST CANCER
     Dates: start: 20040921, end: 20040921
  3. EPIRUBICIN [Suspect]
     Indication: BREAST CANCER
     Dates: start: 20040811, end: 20040811
  4. GEMCITABINE [Suspect]
     Indication: BREAST CANCER
     Dates: start: 20040923, end: 20040923

REACTIONS (4)
  - DIZZINESS [None]
  - HEADACHE [None]
  - PYREXIA [None]
  - STOMATITIS [None]
